FAERS Safety Report 16065221 (Version 4)
Quarter: 2022Q1

REPORT INFORMATION
  Report Type: Spontaneous
  Country: NL (occurrence: NL)
  Receive Date: 20190313
  Receipt Date: 20220201
  Transmission Date: 20220424
  Serious: Yes (Other)
  Sender: FDA-Public Use
  Company Number: None

PATIENT
  Age: 50 Year
  Sex: Female
  Weight: 90 kg

DRUGS (6)
  1. PRIVIGEN [Suspect]
     Active Substance: HUMAN IMMUNOGLOBULIN G
     Indication: Immune thrombocytopenia
     Dosage: 90 G, QD
     Route: 042
     Dates: start: 20190203, end: 20190203
  2. DEXAMETHASON                       /00016001/ [Concomitant]
     Dosage: EITHER 40MG/DAY OR 80MG/DAY (CONTRADICTORY INFORMATION) (ONCE PER DAY 2 UNITS)
     Route: 048
     Dates: start: 20190102
  3. PRIMOLUT                           /00044901/ [Concomitant]
     Dosage: 5 MG, TID (3X PER DAY 1 UNIT)
     Route: 048
     Dates: start: 20190130
  4. MOVICOLON [Concomitant]
     Active Substance: POLYETHYLENE GLYCOL 3350\POTASSIUM CHLORIDE\SODIUM BICARBONATE\SODIUM CHLORIDE
     Dosage: 1 DF, BID (2 X PER DAY 1 UNIT)
     Route: 048
     Dates: start: 20190102
  5. IRON ISOMALTOSIDE 1000 [Concomitant]
     Active Substance: IRON ISOMALTOSIDE 1000
     Dosage: 10 ML, QD (1X PER DAY 10 ML)
     Route: 051
     Dates: start: 20190202
  6. CYKLOKAPRON [Concomitant]
     Active Substance: TRANEXAMIC ACID
     Dosage: 1000 MG, QID (4X PER DAY 2 UNITS)
     Route: 048
     Dates: start: 20190102

REACTIONS (1)
  - Bradycardia [Recovered/Resolved]

NARRATIVE: CASE EVENT DATE: 20190203
